FAERS Safety Report 25165601 (Version 1)
Quarter: 2025Q2

REPORT INFORMATION
  Report Type: Spontaneous
  Country: ID (occurrence: ID)
  Receive Date: 20250407
  Receipt Date: 20250407
  Transmission Date: 20250717
  Serious: Yes (Hospitalization, Other)
  Sender: UNICHEM
  Company Number: ID-UNICHEM LABORATORIES LIMITED-UNI-2025-ID-001739

PATIENT

DRUGS (1)
  1. DONEPEZIL [Suspect]
     Active Substance: DONEPEZIL
     Indication: Dementia
     Route: 065

REACTIONS (5)
  - Overweight [Recovering/Resolving]
  - Hypokalaemia [Unknown]
  - Asthenia [Unknown]
  - Syncope [Unknown]
  - Bradyarrhythmia [Unknown]
